FAERS Safety Report 9594132 (Version 1)
Quarter: 2013Q4

REPORT INFORMATION
  Report Type: Spontaneous
  Country: US (occurrence: None)
  Receive Date: 20131002
  Receipt Date: 20131002
  Transmission Date: 20140711
  Serious: Yes (Death)
  Sender: FDA-Public Use
  Company Number: 2013P1019565

PATIENT
  Age: 32 Year
  Sex: Female

DRUGS (4)
  1. VANCOMYCIN [Suspect]
     Dosage: ; IV
     Route: 042
  2. FLUCONAZOLE [Concomitant]
  3. ANALGESICS [Concomitant]
  4. NATUROPATHIC THERAPIES [Concomitant]

REACTIONS (6)
  - Cardiac arrest [None]
  - Tracheostomy [None]
  - Pneumonia [None]
  - Cardiopulmonary failure [None]
  - Disease complication [None]
  - Flavobacterium test positive [None]
